FAERS Safety Report 14905272 (Version 2)
Quarter: 2019Q3

REPORT INFORMATION
  Report Type: Report from Study
  Country: US (occurrence: US)
  Receive Date: 20180517
  Receipt Date: 20190904
  Transmission Date: 20191004
  Serious: No
  Sender: FDA-Public Use
  Company Number: US-SA-2017SA241756

PATIENT
  Age: 63 Year
  Sex: Female

DRUGS (5)
  1. INSULIN GLARGINE [Suspect]
     Active Substance: INSULIN GLARGINE
     Dosage: BED TIME-64 U, HS
     Route: 058
  2. SOLOSTAR [Suspect]
     Active Substance: DEVICE
     Indication: TYPE 2 DIABETES MELLITUS
  3. SOLOSTAR [Suspect]
     Active Substance: DEVICE
  4. INSULIN GLARGINE [Suspect]
     Active Substance: INSULIN GLARGINE
     Indication: TYPE 2 DIABETES MELLITUS
     Dosage: 70 DF, QD
     Route: 051
  5. INSULIN GLARGINE [Suspect]
     Active Substance: INSULIN GLARGINE
     Dosage: 74 DF, QD
     Route: 051

REACTIONS (2)
  - Device issue [Unknown]
  - Wrong technique in device usage process [Unknown]
